FAERS Safety Report 4285151-7 (Version None)
Quarter: 2004Q1

REPORT INFORMATION
  Report Type: 
  Country: None (occurrence: None)
  Receive Date: 20040202
  Receipt Date: 20040127
  Transmission Date: 20041129
  Serious: Yes (Hospitalization)
  Sender: FDA-Public Use
  Company Number: MK200401-0338-1

PATIENT

DRUGS (7)
  1. ANAFRANIL [Suspect]
     Dosage: TRANSPLACENTALLY
     Route: 064
  2. DIAZEPAM [Concomitant]
  3. FLUNITRAZEPAM [Concomitant]
  4. HALOPERIDOL [Concomitant]
  5. HYDROXYZINE HCL [Concomitant]
  6. RITODRINE HCL [Concomitant]
  7. TRANSPLACENTALLY [Concomitant]

REACTIONS (5)
  - CLONUS [None]
  - DRUG EXPOSURE DURING PREGNANCY [None]
  - FEEDING PROBLEM IN NEWBORN [None]
  - HYPOTONIA NEONATAL [None]
  - NEONATAL RESPIRATORY DEPRESSION [None]
